FAERS Safety Report 13261859 (Version 1)
Quarter: 2017Q1

REPORT INFORMATION
  Report Type: Not Available
  Country: US (occurrence: US)
  Receive Date: 20170222
  Receipt Date: 20170222
  Transmission Date: 20170428
  Serious: No
  Sender: FDA-Public Use
  Company Number: US-HISAMITSU-2016-US-005147

PATIENT
  Age: 24 Year
  Sex: Male
  Weight: 61.24 kg

DRUGS (1)
  1. SALONPAS PAIN RELIEF [Suspect]
     Active Substance: MENTHOL\METHYL SALICYLATE
     Dosage: 1 PATCH TO SHOULDER
     Route: 061
     Dates: start: 20160721, end: 20160721

REACTIONS (2)
  - Chest pain [Not Recovered/Not Resolved]
  - Dyspnoea [Not Recovered/Not Resolved]

NARRATIVE: CASE EVENT DATE: 20160721
